FAERS Safety Report 9355427 (Version 1)
Quarter: 2013Q2

REPORT INFORMATION
  Report Type: Report from Study
  Country: GB (occurrence: GB)
  Receive Date: 20130619
  Receipt Date: 20130619
  Transmission Date: 20140414
  Serious: Yes (Death, Other)
  Sender: FDA-Public Use
  Company Number: GB-JNJFOC-20130607228

PATIENT
  Sex: 0

DRUGS (1)
  1. INFLIXIMAB, RECOMBINANT [Suspect]
     Indication: PSORIATIC ARTHROPATHY
     Dosage: 5 MG/KG, 3 MG/KG; ADMINISTERED AT WEEKS 0, 2, 6 AND 8 AND THEN EVERY 8 WEEKS THEREAFTER
     Route: 042

REACTIONS (2)
  - Death [Fatal]
  - Hypersensitivity [Unknown]
